FAERS Safety Report 14070285 (Version 4)
Quarter: 2018Q2

REPORT INFORMATION
  Report Type: Report from Study
  Country: US (occurrence: US)
  Receive Date: 20171010
  Receipt Date: 20180402
  Transmission Date: 20180711
  Serious: Yes (Hospitalization, Other)
  Sender: FDA-Public Use
  Company Number: US-JNJFOC-20170901088

PATIENT
  Age: 74 Year
  Sex: Female

DRUGS (24)
  1. FOLIC ACID. [Concomitant]
     Active Substance: FOLIC ACID
  2. JANUVIA [Concomitant]
     Active Substance: SITAGLIPTIN PHOSPHATE
  3. LOSARTAN. [Concomitant]
     Active Substance: LOSARTAN
  4. ZOFRAN [Concomitant]
     Active Substance: ONDANSETRON HYDROCHLORIDE
  5. TOPROL XL [Concomitant]
     Active Substance: METOPROLOL SUCCINATE
  6. ASPIRIN. [Concomitant]
     Active Substance: ASPIRIN
  7. LEVOFLOXACIN. [Concomitant]
     Active Substance: LEVOFLOXACIN
  8. CYCLOPHOSPHAMIDE. [Concomitant]
     Active Substance: CYCLOPHOSPHAMIDE
  9. IMBRUVICA [Suspect]
     Active Substance: IBRUTINIB
     Indication: NON-HODGKIN^S LYMPHOMA
     Route: 048
     Dates: start: 20170406, end: 201712
  10. PREDNISONE. [Concomitant]
     Active Substance: PREDNISONE
  11. FLUCONAZOLE. [Concomitant]
     Active Substance: FLUCONAZOLE
  12. NYSTATIN. [Concomitant]
     Active Substance: NYSTATIN
  13. IMBRUVICA [Suspect]
     Active Substance: IBRUTINIB
     Indication: NON-HODGKIN^S LYMPHOMA
     Route: 048
     Dates: start: 20170330
  14. CLOTRIMAZOLE. [Concomitant]
     Active Substance: CLOTRIMAZOLE
  15. FLUOXETINE [Concomitant]
     Active Substance: FLUOXETINE HYDROCHLORIDE
  16. VANCOMYCIN [Concomitant]
     Active Substance: VANCOMYCIN
  17. PREDNISOLONE. [Concomitant]
     Active Substance: PREDNISOLONE
  18. DEXAMETHASONE. [Concomitant]
     Active Substance: DEXAMETHASONE
  19. PEPCID [Concomitant]
     Active Substance: FAMOTIDINE
  20. GABAPENTIN. [Concomitant]
     Active Substance: GABAPENTIN
  21. GLIPIZIDE. [Concomitant]
     Active Substance: GLIPIZIDE
  22. MEMANTINE. [Concomitant]
     Active Substance: MEMANTINE
  23. NORTRIPTYLINE [Concomitant]
     Active Substance: NORTRIPTYLINE
  24. METOPROLOL TARTRATE. [Concomitant]
     Active Substance: METOPROLOL TARTRATE

REACTIONS (5)
  - Pneumonia bacterial [Recovered/Resolved]
  - Fall [Unknown]
  - Traumatic intracranial haemorrhage [Unknown]
  - Pyelonephritis [Recovered/Resolved]
  - Urinary tract infection [Recovered/Resolved]

NARRATIVE: CASE EVENT DATE: 201709
